FAERS Safety Report 9691886 (Version 1)
Quarter: 2013Q4

REPORT INFORMATION
  Report Type: Spontaneous
  Country: US (occurrence: US)
  Receive Date: 20131117
  Receipt Date: 20131117
  Transmission Date: 20140711
  Serious: No
  Sender: FDA-Public Use
  Company Number: US-009507513-1311USA002485

PATIENT
  Age: 68 Year
  Sex: Female

DRUGS (4)
  1. AZASITE [Suspect]
     Indication: DRY EYE
     Dosage: 1 DROP AT BEDTIME IN EACH EYE
     Route: 047
     Dates: start: 20080607
  2. AZASITE [Suspect]
     Indication: MEIBOMIANITIS
  3. RESTASIS [Concomitant]
  4. BEPREVE [Concomitant]
     Dosage: UNK

REACTIONS (2)
  - Dry eye [Unknown]
  - Drug dose omission [Unknown]
